FAERS Safety Report 15150244 (Version 1)
Quarter: 2018Q3

REPORT INFORMATION
  Report Type: Spontaneous
  Country: GB (occurrence: GB)
  Receive Date: 20180716
  Receipt Date: 20180716
  Transmission Date: 20181010
  Serious: Yes (Other)
  Sender: FDA-Public Use
  Company Number: GB-US WORLDMEDS, LLC-STA_00016436

PATIENT
  Sex: Male

DRUGS (16)
  1. PRAMIPEXOLE. [Suspect]
     Active Substance: PRAMIPEXOLE
     Route: 065
     Dates: start: 2002, end: 2007
  2. CO?CARELDOPA [Suspect]
     Active Substance: CARBIDOPA\LEVODOPA
     Route: 065
     Dates: start: 201007
  3. ENTACAPONE. [Suspect]
     Active Substance: ENTACAPONE
     Route: 065
     Dates: start: 2002, end: 200909
  4. AMANTADINE. [Suspect]
     Active Substance: AMANTADINE HYDROCHLORIDE
     Route: 065
     Dates: start: 2002, end: 2007
  5. ORPHENADRINE [Suspect]
     Active Substance: ORPHENADRINE
     Dosage: 150 MILLIGRAM DAILY;
     Route: 065
     Dates: start: 201007
  6. SELEGILINE [Suspect]
     Active Substance: SELEGILINE
     Dosage: 10 MILLIGRAM DAILY;
     Route: 065
     Dates: start: 1995
  7. BENSERAZIDE [Suspect]
     Active Substance: BENSERAZIDE
     Route: 065
     Dates: start: 2002, end: 2007
  8. CO?CARELDOPA [Suspect]
     Active Substance: CARBIDOPA\LEVODOPA
     Route: 065
     Dates: start: 2000, end: 200909
  9. AMANTADINE. [Suspect]
     Active Substance: AMANTADINE HYDROCHLORIDE
     Dosage: 200 MILLIGRAM DAILY;
     Route: 065
     Dates: start: 200811
  10. ROPINIROLE. [Suspect]
     Active Substance: ROPINIROLE
     Indication: PRODUCT USED FOR UNKNOWN INDICATION
     Route: 065
     Dates: start: 2002, end: 2007
  11. ROPINIROLE. [Suspect]
     Active Substance: ROPINIROLE
     Dosage: 24 MILLIGRAM DAILY; MODIFIED RELEASE
     Route: 065
     Dates: start: 200909
  12. CO?CARELDOPA [Suspect]
     Active Substance: CARBIDOPA\LEVODOPA
     Dosage: 750 MILLIGRAM DAILY;
     Route: 065
     Dates: start: 200909, end: 201007
  13. LEVODOPA [Suspect]
     Active Substance: LEVODOPA
     Route: 065
     Dates: start: 2002, end: 2007
  14. APOMORPHINE HYDROCHLORIDE [Suspect]
     Active Substance: APOMORPHINE HYDROCHLORIDE
     Route: 058
     Dates: start: 2007, end: 2007
  15. AMANTADINE. [Suspect]
     Active Substance: AMANTADINE HYDROCHLORIDE
     Dosage: 100 MILLIGRAM DAILY;
     Route: 065
     Dates: start: 201007
  16. ROTIGOTINE [Suspect]
     Active Substance: ROTIGOTINE
     Route: 065
     Dates: start: 2007

REACTIONS (15)
  - Depression [Recovering/Resolving]
  - Hyperhidrosis [Recovered/Resolved]
  - Tremor [Recovered/Resolved]
  - Decreased appetite [Recovered/Resolved]
  - Facial paresis [Unknown]
  - Recall phenomenon [Recovering/Resolving]
  - Memory impairment [Unknown]
  - Transient ischaemic attack [Unknown]
  - Balance disorder [Unknown]
  - Dyskinesia [Recovered/Resolved]
  - Headache [Recovered/Resolved]
  - Haemorrhage [Recovered/Resolved]
  - Feeling abnormal [Unknown]
  - Skin mass [Recovered/Resolved]
  - Muscular weakness [Unknown]

NARRATIVE: CASE EVENT DATE: 2002
